FAERS Safety Report 8935218 (Version 2)
Quarter: 2013Q1

REPORT INFORMATION
  Report Type: Spontaneous
  Country: US (occurrence: US)
  Receive Date: 20121129
  Receipt Date: 20130306
  Transmission Date: 20140127
  Serious: Yes (Hospitalization, Other)
  Sender: FDA-Public Use
  Company Number: US-ELI_LILLY_AND_COMPANY-US201211006891

PATIENT
  Sex: Female

DRUGS (8)
  1. FORTEO [Suspect]
     Indication: OSTEOPOROSIS
     Dosage: 20 UG, QD
     Route: 058
     Dates: start: 201211
  2. FORTEO [Suspect]
     Dosage: 20 UG, QD
     Route: 058
     Dates: start: 201211
  3. OMEPRAZOLE [Concomitant]
     Indication: OESOPHAGEAL ULCER
  4. CARBIDOPA [Concomitant]
     Indication: PARKINSON^S DISEASE
     Dosage: UNK, QID
  5. PAXIL [Concomitant]
     Dosage: 60 MG, QD
  6. GABAPENTIN [Concomitant]
     Dosage: UNK, TID
  7. XANAX [Concomitant]
     Dosage: 5 MG, QD
  8. VICODIN [Concomitant]
     Indication: BACK PAIN

REACTIONS (4)
  - Myocardial infarction [Unknown]
  - Pelvic fracture [Unknown]
  - Fall [Unknown]
  - Nervousness [Unknown]
